FAERS Safety Report 12338562 (Version 2)
Quarter: 2016Q2

REPORT INFORMATION
  Report Type: Report from Study
  Country: US (occurrence: US)
  Receive Date: 20160505
  Receipt Date: 20160516
  Transmission Date: 20160815
  Serious: Yes (Hospitalization)
  Sender: FDA-Public Use
  Company Number: US-VERTEX PHARMACEUTICALS-2016-002880

PATIENT
  Sex: Male
  Weight: 45 kg

DRUGS (19)
  1. ALBUTEROL SULFATE. [Concomitant]
     Active Substance: ALBUTEROL SULFATE
     Dosage: 3 ML, BID
     Route: 055
  2. COMBIVENT RESPIMAT [Concomitant]
     Active Substance: ALBUTEROL SULFATE\IPRATROPIUM BROMIDE
     Dosage: INHALE 1 PUFF, QID
     Route: 055
  3. DULERA [Concomitant]
     Active Substance: FORMOTEROL FUMARATE DIHYDRATE\MOMETASONE FUROATE
     Dosage: INHALE 2 PUFFS INTO LUNGS, BID
     Route: 055
  4. PREDNISONE. [Suspect]
     Active Substance: PREDNISONE
     Indication: INFECTIVE PULMONARY EXACERBATION OF CYSTIC FIBROSIS
     Dosage: UNK, QD
     Route: 048
  5. BETHKIS [Concomitant]
     Active Substance: TOBRAMYCIN
     Dosage: UNK, BID
     Route: 055
  6. WARFARIN [Concomitant]
     Active Substance: WARFARIN
     Dosage: 5 MG, QD
     Route: 048
  7. MUCINEX [Concomitant]
     Active Substance: GUAIFENESIN
     Dosage: 1 DF, BID
     Route: 048
  8. KETOCONAZOLE. [Concomitant]
     Active Substance: KETOCONAZOLE
     Indication: FUNGAL SKIN INFECTION
  9. DILAUDID [Concomitant]
     Active Substance: HYDROMORPHONE HYDROCHLORIDE
     Indication: PAIN
     Dosage: 1 DF, EVERY 4 HOURS, PRN
     Route: 048
     Dates: start: 20160423
  10. MYCOSTATIN [Concomitant]
     Active Substance: NYSTATIN
     Dosage: SUSPENSION, 5 ML, QID
     Dates: start: 20160423, end: 20160502
  11. ALPRAZOLAM. [Concomitant]
     Active Substance: ALPRAZOLAM
     Dosage: 0.5 MG, TID, PRN
     Route: 048
  12. METFORMIN [Concomitant]
     Active Substance: METFORMIN HYDROCHLORIDE
     Dosage: 1 DF, BID WITH MEALS
     Route: 048
  13. CREON [Concomitant]
     Active Substance: PANCRELIPASE AMYLASE\PANCRELIPASE LIPASE\PANCRELIPASE PROTEASE
     Dosage: 3 DF, TID
     Route: 048
  14. ALBUTEROL SULFATE. [Concomitant]
     Active Substance: ALBUTEROL SULFATE
     Dosage: INHALE 1 VIAL IN NEBULIZER, 4 TIMES A DAY , PRN
     Route: 055
  15. VENTOLIN HFA [Concomitant]
     Active Substance: ALBUTEROL SULFATE
     Dosage: INHALE 2 PUFFS BY MOUTH EVERY 2-4 HRS, PRN
     Route: 055
  16. AMBIEN [Concomitant]
     Active Substance: ZOLPIDEM TARTRATE
     Indication: INSOMNIA
     Dosage: 1 DF, QD AT BEDTIME
     Route: 048
  17. ORKAMBI [Suspect]
     Active Substance: IVACAFTOR\LUMACAFTOR
     Indication: CYSTIC FIBROSIS
     Dosage: UNK
     Route: 048
     Dates: start: 20151112
  18. ORKAMBI [Suspect]
     Active Substance: IVACAFTOR\LUMACAFTOR
     Dosage: UNK
     Route: 048
  19. FLUTICASONE [Concomitant]
     Active Substance: FLUTICASONE\FLUTICASONE PROPIONATE
     Dosage: 1 DF, QD
     Route: 045

REACTIONS (4)
  - Infective pulmonary exacerbation of cystic fibrosis [Unknown]
  - Pharyngitis [Unknown]
  - Sepsis [Recovering/Resolving]
  - Leukocytosis [Not Recovered/Not Resolved]
